FAERS Safety Report 12253071 (Version 1)
Quarter: 2016Q2

REPORT INFORMATION
  Report Type: Spontaneous
  Country: None (occurrence: None)
  Receive Date: 20160408
  Receipt Date: 20160408
  Transmission Date: 20160815
  Serious: Yes (Other)
  Sender: FDA-Public Use
  Company Number: None

PATIENT
  Age: 64 Year
  Sex: Male
  Weight: 90.72 kg

DRUGS (3)
  1. MICARDUS [Concomitant]
  2. CRESTOR [Concomitant]
     Active Substance: ROSUVASTATIN CALCIUM
  3. DYMISTA [Suspect]
     Active Substance: AZELASTINE HYDROCHLORIDE\FLUTICASONE PROPIONATE
     Indication: UPPER-AIRWAY COUGH SYNDROME
     Route: 055
     Dates: start: 20160323, end: 20160405

REACTIONS (3)
  - Dizziness [None]
  - Loss of consciousness [None]
  - Disorientation [None]

NARRATIVE: CASE EVENT DATE: 20160405
